FAERS Safety Report 5052089-7 (Version None)
Quarter: 2006Q3

REPORT INFORMATION
  Report Type: 
  Country: None (occurrence: None)
  Receive Date: 20060711
  Receipt Date: 20060626
  Transmission Date: 20061208
  Serious: Yes (Hospitalization)
  Sender: FDA-Public Use
  Company Number: 29347

PATIENT
  Age: 70 Year
  Sex: Male

DRUGS (2)
  1. FLECAINIDE ACETATE [Suspect]
     Indication: TACHYARRHYTHMIA
     Dosage: 200  MG (100 MG, 2 IN 1 DAY (S) )  ORAL
     Route: 048
     Dates: start: 20060501, end: 20060606
  2. DIURETICS [Concomitant]

REACTIONS (1)
  - PLEURAL EFFUSION [None]
